FAERS Safety Report 9775629 (Version 1)
Quarter: 2013Q4

REPORT INFORMATION
  Report Type: Spontaneous
  Country: IT (occurrence: IT)
  Receive Date: 20131220
  Receipt Date: 20131220
  Transmission Date: 20140711
  Serious: Yes (Hospitalization)
  Sender: FDA-Public Use
  Company Number: IT-MALLINCKRODT-T201305122

PATIENT
  Age: 37 Year
  Sex: Male

DRUGS (1)
  1. OPTIRAY [Suspect]
     Indication: INVESTIGATION
     Dosage: 16 G, SINGLE
     Route: 042
     Dates: start: 20131127, end: 20131127

REACTIONS (3)
  - Contrast media reaction [Recovering/Resolving]
  - Rash [Recovering/Resolving]
  - Rash morbilliform [Recovering/Resolving]
